FAERS Safety Report 8972983 (Version 1)
Quarter: 2012Q4

REPORT INFORMATION
  Report Type: 
  Country: US (occurrence: US)
  Receive Date: 20121218
  Receipt Date: 20121218
  Transmission Date: 20130627
  Serious: No
  Sender: FDA-Public Use
  Company Number: US-BRISTOL-MYERS SQUIBB COMPANY-16465833

PATIENT
  Age: 57 Year
  Sex: Female
  Weight: 64 kg

DRUGS (2)
  1. ABILIFY TABS 5 MG [Suspect]
     Indication: DEPRESSION
     Dates: start: 201010
  2. PAXIL [Concomitant]

REACTIONS (1)
  - Weight increased [Unknown]
